FAERS Safety Report 24972865 (Version 1)
Quarter: 2025Q1

REPORT INFORMATION
  Report Type: Spontaneous
  Country: US (occurrence: US)
  Receive Date: 20250215
  Receipt Date: 20250215
  Transmission Date: 20250409
  Serious: Yes (Other)
  Sender: AMGEN
  Company Number: US-AMGEN-USASP2025026993

PATIENT
  Sex: Female

DRUGS (1)
  1. EVENITY [Suspect]
     Active Substance: ROMOSOZUMAB-AQQG
     Indication: Rheumatoid arthritis
     Dosage: 210 MILLIGRAM, QMO
     Route: 058
     Dates: start: 202411

REACTIONS (10)
  - Rheumatoid arthritis [Unknown]
  - Drug intolerance [Unknown]
  - Eczema [Not Recovered/Not Resolved]
  - Lymphadenopathy [Unknown]
  - Injection site mass [Unknown]
  - Influenza like illness [Unknown]
  - Injection site pain [Not Recovered/Not Resolved]
  - Injection site erythema [Unknown]
  - Injection site bruising [Unknown]
  - Injection site discolouration [Unknown]

NARRATIVE: CASE EVENT DATE: 20241101
